FAERS Safety Report 7447683-X (Version None)
Quarter: 2011Q2

REPORT INFORMATION
  Report Type: 
  Country: None (occurrence: None)
  Receive Date: 20110429
  Receipt Date: 20110112
  Transmission Date: 20111010
  Serious: No
  Sender: FDA-Public Use
  Company Number: US-ASTRAZENECA-2011SE02232

PATIENT
  Sex: Female

DRUGS (10)
  1. PLAVIX [Concomitant]
  2. NEXIUM [Suspect]
     Route: 048
  3. TOPROL-XL [Concomitant]
  4. FISH OIL [Concomitant]
  5. SERTRALINE [Concomitant]
  6. BENADRYL [Concomitant]
  7. C VITAMIN [Concomitant]
  8. ASPIRIN [Concomitant]
  9. RED YEAST RICE [Concomitant]
  10. LEVOXYL [Concomitant]

REACTIONS (2)
  - GLOSSODYNIA [None]
  - PARAESTHESIA [None]
